FAERS Safety Report 6024301-9 (Version None)
Quarter: 2008Q4

REPORT INFORMATION
  Report Type: 
  Country: None (occurrence: None)
  Receive Date: 20081231
  Receipt Date: 20081219
  Transmission Date: 20090506
  Serious: Yes (Hospitalization)
  Sender: FDA-Public Use
  Company Number: US-PFIZER INC-2008094755

PATIENT
  Sex: Female

DRUGS (1)
  1. TIKOSYN [Suspect]

REACTIONS (4)
  - BLOOD PRESSURE FLUCTUATION [None]
  - HEART RATE IRREGULAR [None]
  - PYREXIA [None]
  - UNEVALUABLE EVENT [None]
